FAERS Safety Report 4513401-8 (Version None)
Quarter: 2004Q4

REPORT INFORMATION
  Report Type: 
  Country: None (occurrence: None)
  Receive Date: 20041130
  Receipt Date: 20040910
  Transmission Date: 20050328
  Serious: Yes (Hospitalization)
  Sender: FDA-Public Use
  Company Number: US-BRISTOL-MYERS SQUIBB COMPANY-12698916

PATIENT
  Age: 80 Year
  Sex: Female

DRUGS (16)
  1. ERBITUX [Suspect]
     Indication: RECTAL CANCER METASTATIC
     Route: 042
     Dates: start: 20040722, end: 20040722
  2. DECADRON [Concomitant]
     Indication: PREMEDICATION
     Route: 042
     Dates: start: 20040722, end: 20040722
  3. BENADRYL [Concomitant]
     Indication: PREMEDICATION
     Route: 042
     Dates: start: 20040722, end: 20040722
  4. TYLENOL (CAPLET) [Concomitant]
     Indication: PREMEDICATION
     Route: 048
     Dates: start: 20040722, end: 20040722
  5. ATROPINE [Concomitant]
     Indication: PREMEDICATION
     Route: 042
     Dates: start: 20040722, end: 20040722
  6. KYTRIL [Concomitant]
     Indication: PREMEDICATION
     Route: 042
     Dates: start: 20040722, end: 20040722
  7. IRINOTECAN HCL [Concomitant]
  8. MEGACE [Concomitant]
  9. NEXIUM [Concomitant]
  10. ZOCOR [Concomitant]
  11. VITAMIN B6 [Concomitant]
  12. IRON [Concomitant]
  13. NEURONTIN [Concomitant]
  14. LOTREL [Concomitant]
  15. PERCODAN [Concomitant]
  16. ZOFRAN [Concomitant]

REACTIONS (1)
  - RENAL FAILURE ACUTE [None]
